FAERS Safety Report 25659627 (Version 1)
Quarter: 2025Q3

REPORT INFORMATION
  Report Type: Spontaneous
  Country: US (occurrence: US)
  Receive Date: 20250808
  Receipt Date: 20250808
  Transmission Date: 20251021
  Serious: Yes (Death, Life-Threatening, Hospitalization)
  Sender: MYLAN
  Company Number: US-MYLANLABS-2025M1065567

PATIENT
  Sex: Female

DRUGS (24)
  1. LOPERAMIDE [Suspect]
     Active Substance: LOPERAMIDE
     Indication: Back pain
  2. LOPERAMIDE [Suspect]
     Active Substance: LOPERAMIDE
     Route: 065
  3. LOPERAMIDE [Suspect]
     Active Substance: LOPERAMIDE
     Route: 065
  4. LOPERAMIDE [Suspect]
     Active Substance: LOPERAMIDE
  5. SODIUM BICARBONATE [Suspect]
     Active Substance: SODIUM BICARBONATE
     Indication: Toxicity to various agents
  6. SODIUM BICARBONATE [Suspect]
     Active Substance: SODIUM BICARBONATE
     Route: 065
  7. SODIUM BICARBONATE [Suspect]
     Active Substance: SODIUM BICARBONATE
     Route: 065
  8. SODIUM BICARBONATE [Suspect]
     Active Substance: SODIUM BICARBONATE
  9. INTRALIPID [Suspect]
     Active Substance: EGG PHOSPHOLIPIDS\GLYCERIN\SOYBEAN OIL
     Indication: Toxicity to various agents
  10. INTRALIPID [Suspect]
     Active Substance: EGG PHOSPHOLIPIDS\GLYCERIN\SOYBEAN OIL
     Route: 065
  11. INTRALIPID [Suspect]
     Active Substance: EGG PHOSPHOLIPIDS\GLYCERIN\SOYBEAN OIL
     Route: 065
  12. INTRALIPID [Suspect]
     Active Substance: EGG PHOSPHOLIPIDS\GLYCERIN\SOYBEAN OIL
  13. AMIODARONE [Concomitant]
     Active Substance: AMIODARONE
     Indication: Cardiac arrest
  14. AMIODARONE [Concomitant]
     Active Substance: AMIODARONE
     Route: 042
  15. AMIODARONE [Concomitant]
     Active Substance: AMIODARONE
     Route: 042
  16. AMIODARONE [Concomitant]
     Active Substance: AMIODARONE
  17. NOREPINEPHRINE [Concomitant]
     Active Substance: NOREPINEPHRINE
     Indication: Hypotension
  18. NOREPINEPHRINE [Concomitant]
     Active Substance: NOREPINEPHRINE
     Route: 065
  19. NOREPINEPHRINE [Concomitant]
     Active Substance: NOREPINEPHRINE
     Route: 065
  20. NOREPINEPHRINE [Concomitant]
     Active Substance: NOREPINEPHRINE
  21. NALOXONE [Concomitant]
     Active Substance: NALOXONE
     Indication: Intentional overdose
  22. NALOXONE [Concomitant]
     Active Substance: NALOXONE
     Route: 065
  23. NALOXONE [Concomitant]
     Active Substance: NALOXONE
     Route: 065
  24. NALOXONE [Concomitant]
     Active Substance: NALOXONE

REACTIONS (11)
  - Brain injury [Fatal]
  - Toxicity to various agents [Unknown]
  - Drug abuse [Unknown]
  - Intentional overdose [Unknown]
  - Supraventricular tachycardia [Unknown]
  - Cardiac arrest [Recovering/Resolving]
  - Ventricular fibrillation [Unknown]
  - Metabolic acidosis [Unknown]
  - Hypotension [Unknown]
  - Ventricular tachycardia [Unknown]
  - Drug ineffective [Unknown]
